FAERS Safety Report 16550386 (Version 1)
Quarter: 2019Q3

REPORT INFORMATION
  Report Type: Spontaneous
  Country: US (occurrence: US)
  Receive Date: 20190528
  Receipt Date: 20190528
  Transmission Date: 20191004
  Serious: No
  Sender: FDA-Public Use
  Company Number: None

PATIENT
  Age: 50 Year
  Sex: Female

DRUGS (3)
  1. SYNVISC [Concomitant]
     Active Substance: HYLAN G-F 20
  2. TYMLOS [Concomitant]
     Active Substance: ABALOPARATIDE
  3. DILANTIN [Suspect]
     Active Substance: PHENYTOIN

REACTIONS (1)
  - Toxicity to various agents [None]
